FAERS Safety Report 4451103-7 (Version None)
Quarter: 2004Q3

REPORT INFORMATION
  Report Type: 
  Country: None (occurrence: None)
  Receive Date: 20040916
  Receipt Date: 20040609
  Transmission Date: 20050211
  Serious: Yes (Death)
  Sender: FDA-Public Use
  Company Number: 200412020JP

PATIENT
  Age: 76 Year
  Sex: Female
  Weight: 34 kg

DRUGS (10)
  1. ARAVA [Suspect]
     Indication: RHEUMATOID ARTHRITIS
     Route: 048
     Dates: start: 20031030, end: 20031210
  2. PREDNISOLONE [Concomitant]
     Indication: INFLAMMATION
     Route: 048
     Dates: start: 20031103, end: 20031209
  3. ETODOLAC [Concomitant]
     Indication: INFLAMMATION
     Route: 048
     Dates: start: 20031220
  4. ACTONEL [Concomitant]
     Indication: OSTEOPOROSIS
     Route: 048
     Dates: end: 20031220
  5. INTENURSE [Concomitant]
     Indication: INFLAMMATION
     Route: 062
     Dates: end: 20031220
  6. LIMETHASON [Concomitant]
     Indication: INFLAMMATION
     Route: 041
     Dates: start: 20031031, end: 20031031
  7. METHYLPREDNISOLONE [Concomitant]
     Indication: IMMUNOSUPPRESSION
     Route: 041
     Dates: start: 20031104, end: 20031104
  8. EPINASTINE HYDROCHLORIDE [Concomitant]
     Indication: ASTHMA
     Route: 048
     Dates: end: 20031220
  9. ERYTHROMYCIN [Concomitant]
     Indication: ASTHMA
     Route: 048
     Dates: end: 20021220
  10. METHOTREXATE [Concomitant]
     Dosage: DOSE: 8MG/WEEK
     Route: 048
     Dates: start: 19900411, end: 19980107

REACTIONS (21)
  - ATELECTASIS [None]
  - BLOOD CHOLESTEROL INCREASED [None]
  - BLOOD GLUCOSE INCREASED [None]
  - BLOOD LACTATE DEHYDROGENASE INCREASED [None]
  - DISEASE RECURRENCE [None]
  - DRUG INEFFECTIVE [None]
  - GAMMA-GLUTAMYLTRANSFERASE INCREASED [None]
  - GLUCOSE URINE PRESENT [None]
  - GLYCOSYLATED HAEMOGLOBIN INCREASED [None]
  - HAEMOGLOBIN DECREASED [None]
  - LUNG CONSOLIDATION [None]
  - LYMPHOCYTE PERCENTAGE DECREASED [None]
  - MEAN CELL HAEMOGLOBIN DECREASED [None]
  - MEAN CELL VOLUME DECREASED [None]
  - MONOCYTE PERCENTAGE INCREASED [None]
  - PERONEAL NERVE PALSY [None]
  - PLEURAL EFFUSION [None]
  - PLEURISY [None]
  - PNEUMONIA [None]
  - RED BLOOD CELL COUNT DECREASED [None]
  - SEPSIS [None]
